FAERS Safety Report 7544254-1 (Version None)
Quarter: 2011Q2

REPORT INFORMATION
  Report Type: 
  Country: None (occurrence: None)
  Receive Date: 20110613
  Receipt Date: 20070821
  Transmission Date: 20111010
  Serious: Yes (Hospitalization, Other)
  Sender: FDA-Public Use
  Company Number: PHNR2007AU01917

PATIENT
  Sex: Female

DRUGS (3)
  1. OLANZAPINE [Concomitant]
  2. CLOZAPINE [Suspect]
     Indication: SCHIZOPHRENIA
     Dosage: 50- 650MG DAILY
     Route: 048
     Dates: start: 20070701, end: 20070814
  3. INTERFERON [Suspect]
     Indication: HEPATITIS C
     Dosage: 180MCG/0.5ML WEEKLY
     Dates: start: 20070701

REACTIONS (4)
  - HEPATITIS C [None]
  - NEUTROPENIA [None]
  - NEUTROPHIL COUNT DECREASED [None]
  - WHITE BLOOD CELL COUNT DECREASED [None]
